FAERS Safety Report 6594642-5 (Version None)
Quarter: 2010Q1

REPORT INFORMATION
  Report Type: 
  Country: None (occurrence: None)
  Receive Date: 20100222
  Receipt Date: 20091110
  Transmission Date: 20100710
  Serious: No
  Sender: FDA-Public Use
  Company Number: US-BRISTOL-MYERS SQUIBB COMPANY-14852255

PATIENT

DRUGS (2)
  1. TAXOL [Suspect]
  2. TAXOTERE [Suspect]

REACTIONS (1)
  - ADVERSE DRUG REACTION [None]
